FAERS Safety Report 6821630-3 (Version None)
Quarter: 2010Q3

REPORT INFORMATION
  Report Type: 
  Country: None (occurrence: None)
  Receive Date: 20100707
  Receipt Date: 20090605
  Transmission Date: 20110219
  Serious: No
  Sender: FDA-Public Use
  Company Number: US-PFIZER INC-2009191241

PATIENT
  Sex: Female

DRUGS (6)
  1. SERTRALINE HCL [Suspect]
     Indication: ANXIETY
  2. SERTRALINE HCL [Suspect]
     Indication: PANIC DISORDER
  3. SERTRALINE HCL [Suspect]
     Indication: DEPRESSION
  4. BUPROPION HYDROCHLORIDE [Concomitant]
  5. CLONAZEPAM [Concomitant]
  6. TRAZODONE [Concomitant]

REACTIONS (3)
  - DEPRESSED MOOD [None]
  - ODYNOPHAGIA [None]
  - VOMITING [None]
